FAERS Safety Report 13859980 (Version 1)
Quarter: 2017Q3

REPORT INFORMATION
  Report Type: Report from Study
  Country: US (occurrence: US)
  Receive Date: 20170811
  Receipt Date: 20170811
  Transmission Date: 20171127
  Serious: Yes (Death, Hospitalization)
  Sender: FDA-Public Use
  Company Number: US-JNJFOC-20170716300

PATIENT
  Age: 72 Year
  Sex: Male

DRUGS (1)
  1. IMBRUVICA [Suspect]
     Active Substance: IBRUTINIB
     Indication: CHRONIC LYMPHOCYTIC LEUKAEMIA
     Route: 048
     Dates: start: 20170616, end: 20170710

REACTIONS (6)
  - Pneumonia [Fatal]
  - Fungal infection [Fatal]
  - Pleural effusion [Unknown]
  - Atrial fibrillation [Unknown]
  - Neutropenia [Unknown]
  - Hypotension [Unknown]

NARRATIVE: CASE EVENT DATE: 201707
